FAERS Safety Report 13195463 (Version 1)
Quarter: 2017Q1

REPORT INFORMATION
  Report Type: Spontaneous
  Country: US (occurrence: US)
  Receive Date: 20170207
  Receipt Date: 20170207
  Transmission Date: 20170428
  Serious: Yes (Hospitalization)
  Sender: FDA-Public Use
  Company Number: None

PATIENT
  Age: 72 Year
  Sex: Male

DRUGS (32)
  1. ALBUTEROL. [Concomitant]
     Active Substance: ALBUTEROL
  2. VIBRAMYCIN [Concomitant]
     Active Substance: DOXYCYCLINE
  3. FERROUS SULFA [Concomitant]
  4. NORCO [Concomitant]
     Active Substance: ACETAMINOPHEN\HYDROCODONE BITARTRATE
  5. NOVOLOG [Concomitant]
     Active Substance: INSULIN ASPART
  6. VITAMIN C [Concomitant]
     Active Substance: ASCORBIC ACID
  7. ASPIRIN. [Concomitant]
     Active Substance: ASPIRIN
  8. MIRALAX [Concomitant]
     Active Substance: POLYETHYLENE GLYCOL 3350
  9. FOLIC ACID. [Concomitant]
     Active Substance: FOLIC ACID
  10. LISINOPRIL. [Concomitant]
     Active Substance: LISINOPRIL
  11. METFORMIN [Concomitant]
     Active Substance: METFORMIN HYDROCHLORIDE
  12. MAALOX ANTACID [Concomitant]
     Active Substance: ALUMINUM HYDROXIDE\DIMETHICONE\MAGNESIUM HYDROXIDE
  13. LYRICA [Concomitant]
     Active Substance: PREGABALIN
  14. MAGOX [Concomitant]
  15. EFFEXOR [Concomitant]
     Active Substance: VENLAFAXINE HYDROCHLORIDE
  16. ALPRAZOLAM. [Concomitant]
     Active Substance: ALPRAZOLAM
  17. ELIQUIS [Concomitant]
     Active Substance: APIXABAN
  18. DOXAZOSIN [Concomitant]
     Active Substance: DOXAZOSIN\DOXAZOSIN MESYLATE
  19. GLUCOTROL [Concomitant]
     Active Substance: GLIPIZIDE
  20. MAG CITRATE [Concomitant]
  21. MELATONIN [Concomitant]
     Active Substance: MELATONIN
  22. PAMELOR [Concomitant]
     Active Substance: NORTRIPTYLINE HYDROCHLORIDE
  23. OXYCODONE [Concomitant]
     Active Substance: OXYCODONE
  24. PROVENTIL [Concomitant]
     Active Substance: ALBUTEROL
  25. LASIX [Concomitant]
     Active Substance: FUROSEMIDE
  26. SYNTHROID [Concomitant]
     Active Substance: LEVOTHYROXINE SODIUM
  27. TOPROL XL [Concomitant]
     Active Substance: METOPROLOL SUCCINATE
  28. SENNA [Concomitant]
     Active Substance: SENNA LEAF\SENNOSIDES\SENNOSIDES A AND B
  29. SIMVASTATIN. [Concomitant]
     Active Substance: SIMVASTATIN
  30. LONSURF [Suspect]
     Active Substance: TIPIRACIL HYDROCHLORIDE\TRIFLURIDINE
     Dosage: 20MG 4 TABLETS BID ORAL
     Route: 048
     Dates: start: 20170203, end: 20170204
  31. ADVAIR DISKUS [Concomitant]
     Active Substance: FLUTICASONE PROPIONATE\SALMETEROL XINAFOATE
  32. ZOFRAN [Concomitant]
     Active Substance: ONDANSETRON HYDROCHLORIDE

REACTIONS (2)
  - Tumour obstruction [None]
  - Intestinal obstruction [None]

NARRATIVE: CASE EVENT DATE: 20170204
